FAERS Safety Report 8083777-6 (Version None)
Quarter: 2012Q1

REPORT INFORMATION
  Report Type: 
  Country: None (occurrence: None)
  Receive Date: 20120128
  Receipt Date: 20110124
  Transmission Date: 20120608
  Serious: No
  Sender: FDA-Public Use
  Company Number: US-ABBOTT-11P-163-0700369-00

PATIENT
  Age: 42 Year
  Sex: Male

DRUGS (7)
  1. FOLIC ACID [Concomitant]
     Indication: VITAMIN SUPPLEMENTATION
  2. VICODIN [Concomitant]
     Indication: INSOMNIA
  3. METHOTREXATE [Concomitant]
     Indication: ARTHRITIS
  4. HUMIRA [Suspect]
     Indication: PSORIATIC ARTHROPATHY
  5. IBUPROFEN [Concomitant]
     Indication: PAIN
  6. MULTI-VITAMIN [Concomitant]
     Indication: VITAMIN SUPPLEMENTATION
  7. LINSOPRIL [Concomitant]
     Indication: BLOOD PRESSURE

REACTIONS (3)
  - HYPOAESTHESIA [None]
  - SWELLING [None]
  - PAIN [None]
